FAERS Safety Report 5052727-9 (Version None)
Quarter: 2006Q3

REPORT INFORMATION
  Report Type: 
  Country: None (occurrence: None)
  Receive Date: 20060717
  Receipt Date: 20060630
  Transmission Date: 20061208
  Serious: Yes (Other)
  Sender: FDA-Public Use
  Company Number: BE-MERCK-0607BEL00004

PATIENT
  Age: 33 Year
  Sex: Female
  Weight: 77 kg

DRUGS (3)
  1. SINGULAIR [Suspect]
     Indication: ASTHMA
     Route: 048
     Dates: start: 20060629, end: 20060629
  2. SINGULAIR [Suspect]
     Indication: BRONCHITIS
     Route: 048
     Dates: start: 20060629, end: 20060629
  3. CETIRIZINE HYDROCHLORIDE [Concomitant]
     Indication: SEASONAL ALLERGY
     Route: 048

REACTIONS (11)
  - DIZZINESS [None]
  - DYSPNOEA [None]
  - FATIGUE [None]
  - HEPATIC PAIN [None]
  - INSOMNIA [None]
  - MUSCULAR WEAKNESS [None]
  - NERVOUSNESS [None]
  - OEDEMA PERIPHERAL [None]
  - PSYCHOMOTOR HYPERACTIVITY [None]
  - TACHYCARDIA [None]
  - TREMOR [None]
